FAERS Safety Report 7365684-7 (Version None)
Quarter: 2011Q1

REPORT INFORMATION
  Report Type: 
  Country: None (occurrence: None)
  Receive Date: 20110316
  Receipt Date: 20110316
  Transmission Date: 20110831
  Serious: Yes (Other)
  Sender: FDA-Public Use
  Company Number: None

PATIENT
  Age: 26 Year
  Sex: Female
  Weight: 63.5036 kg

DRUGS (2)
  1. CHLORAPREP [Suspect]
     Indication: SURGERY
     Dosage: USED BY DOCTOR BEFORE SURGERY ONE TIME
     Dates: start: 20110308, end: 20110308
  2. CHLORAPREP [Suspect]
     Indication: SURGERY
     Dosage: USED BY DOCTOR BEFORE SURGERY ONE TIME
     Dates: start: 20100207, end: 20100207

REACTIONS (7)
  - DRUG HYPERSENSITIVITY [None]
  - APPLICATION SITE RASH [None]
  - APPLICATION SITE BURN [None]
  - APPLICATION SITE ERYTHEMA [None]
  - APPLICATION SITE VESICLES [None]
  - APPLICATION SITE URTICARIA [None]
  - APPLICATION SITE PRURITUS [None]
